FAERS Safety Report 5249327-4 (Version None)
Quarter: 2007Q1

REPORT INFORMATION
  Report Type: 
  Country: None (occurrence: None)
  Receive Date: 20070228
  Receipt Date: 20070220
  Transmission Date: 20070707
  Serious: Yes (Other)
  Sender: FDA-Public Use
  Company Number: JP-AVENTIS-200710236JP

PATIENT
  Age: 57 Year
  Sex: Male
  Weight: 60 kg

DRUGS (6)
  1. TAXOTERE [Suspect]
     Route: 041
     Dates: start: 20070103, end: 20070103
  2. TS-1 [Concomitant]
     Route: 048
     Dates: start: 20061213
  3. OLMETEC [Concomitant]
     Indication: HYPERTENSION
     Route: 048
  4. ATELEC [Concomitant]
     Indication: HYPERTENSION
     Route: 048
  5. KYTRIL                             /01178101/ [Concomitant]
     Indication: PREMEDICATION
     Dates: start: 20061213
  6. DECADRON [Concomitant]
     Indication: PREMEDICATION
     Dates: start: 20061213

REACTIONS (1)
  - HYPERKALAEMIA [None]
